FAERS Safety Report 21952352 (Version 1)
Quarter: 2023Q1

REPORT INFORMATION
  Report Type: Report from Study
  Country: US (occurrence: US)
  Receive Date: 20230203
  Receipt Date: 20230203
  Transmission Date: 20230417
  Serious: No
  Sender: FDA-Public Use
  Company Number: US-EXELIXIS-CABO-22052557

PATIENT
  Sex: Male

DRUGS (14)
  1. CABOMETYX [Suspect]
     Active Substance: CABOZANTINIB S-MALATE
     Indication: Thyroid cancer
     Dosage: 60 MG
  2. CABOMETYX [Suspect]
     Active Substance: CABOZANTINIB S-MALATE
     Dosage: 60 MG
     Dates: start: 202205
  3. ADVIL [Concomitant]
     Active Substance: IBUPROFEN
  4. FENOFIBRATE [Concomitant]
     Active Substance: FENOFIBRATE
  5. GABAPENTIN [Concomitant]
     Active Substance: GABAPENTIN
  6. HUMALOG [Concomitant]
     Active Substance: INSULIN LISPRO
  7. INSULIN NOS [Concomitant]
     Active Substance: INSULIN NOS
  8. LEVOTHYROXINE [Concomitant]
     Active Substance: LEVOTHYROXINE
  9. INSULIN LISPRO [Concomitant]
     Active Substance: INSULIN LISPRO
  10. METFORMIN [Concomitant]
     Active Substance: METFORMIN HYDROCHLORIDE
  11. MIRTAZAPINE [Concomitant]
     Active Substance: MIRTAZAPINE
  12. OMEGA-3 ACIDS [Concomitant]
     Active Substance: OMEGA-3 FATTY ACIDS
  13. ROSUVASTATIN [Concomitant]
     Active Substance: ROSUVASTATIN
  14. TYLENOL [Concomitant]
     Active Substance: ACETAMINOPHEN

REACTIONS (1)
  - Liver disorder [Unknown]
